FAERS Safety Report 5266369-3 (Version None)
Quarter: 2007Q1

REPORT INFORMATION
  Report Type: 
  Country: None (occurrence: None)
  Receive Date: 20070315
  Receipt Date: 20070305
  Transmission Date: 20070707
  Serious: Yes (Hospitalization)
  Sender: FDA-Public Use
  Company Number: US-MERCK-0610USA03508

PATIENT
  Age: 44 Year
  Sex: Female

DRUGS (6)
  1. FOSAMAX [Suspect]
     Indication: OSTEOPOROSIS
     Route: 048
     Dates: start: 20020101, end: 20060101
  2. TRILEPTAL [Concomitant]
     Indication: AFFECTIVE DISORDER
     Route: 065
     Dates: start: 19980101
  3. EFFEXOR [Concomitant]
     Indication: DEPRESSION
     Route: 065
     Dates: start: 19980101
  4. ATIVAN [Concomitant]
     Indication: ANXIETY
     Route: 065
     Dates: start: 19980101
  5. BUSPAR [Concomitant]
     Indication: ANXIETY
     Route: 065
     Dates: start: 19980101
  6. ACTONEL [Suspect]
     Indication: OSTEOPOROSIS
     Route: 048
     Dates: start: 20010101

REACTIONS (12)
  - BIPOLAR DISORDER [None]
  - DENTAL CARIES [None]
  - GINGIVAL BLEEDING [None]
  - HYPOAESTHESIA ORAL [None]
  - IMPAIRED HEALING [None]
  - INJURY [None]
  - JAW DISORDER [None]
  - JOINT RANGE OF MOTION DECREASED [None]
  - ORAL INFECTION [None]
  - STOMATITIS [None]
  - TOOTH DISORDER [None]
  - TOOTH LOSS [None]
